FAERS Safety Report 9837446 (Version 1)
Quarter: 2013Q4

REPORT INFORMATION
  Report Type: Spontaneous
  Country: US (occurrence: None)
  Receive Date: 20131205
  Receipt Date: 20131205
  Transmission Date: 20140711
  Serious: Yes (Other)
  Sender: FDA-Public Use
  Company Number: 163-POMAL-13090961

PATIENT
  Age: 79 Year
  Sex: Male
  Weight: 71.22 kg

DRUGS (10)
  1. POMALYST (POMALIDOMIDE) (2 MILLIGRAM, CAPSULES) [Suspect]
     Indication: PLASMA CELL MYELOMA
     Dosage: 2 MG, 1 IN 1 D, PO
     Route: 048
     Dates: start: 20130716, end: 20130820
  2. VELCADE (BORTEZOMIB) (UNKNOWN) [Suspect]
     Indication: PRODUCT USED FOR UNKNOWN INDICATION
  3. DECADRON (DEXAMETHASONE) (UNKNOWN) [Concomitant]
  4. ATORVASTATIN (ATORVASTATIN) (UNKNOWN) [Concomitant]
  5. CALCIUM (CALCIUM) (UNKNOWN) [Concomitant]
  6. FERROUS SULFATE (FERROUS SULFATE) (UNKNOWN) [Concomitant]
  7. NORCO (VICODIN) (UNKNOWN) [Concomitant]
  8. DURAGESIC (FENTANYL) (UNKNOWN) [Concomitant]
  9. PROCRIT (ERYTHROPOIETIN) (UNKNOWN) [Concomitant]
  10. ZOFRAN (ONDANSETRON HYDROCHLORIDE) (UNKNOWN) [Concomitant]

REACTIONS (3)
  - Haemoglobin decreased [None]
  - Leukopenia [None]
  - Nausea [None]
